FAERS Safety Report 4434040-3 (Version None)
Quarter: 2004Q3

REPORT INFORMATION
  Report Type: 
  Country: None (occurrence: None)
  Receive Date: 20040825
  Receipt Date: 20040811
  Transmission Date: 20050211
  Serious: Yes (Other)
  Sender: FDA-Public Use
  Company Number: USA040465456

PATIENT
  Age: 74 Year
  Sex: Female

DRUGS (1)
  1. EVISTA [Suspect]
     Indication: OSTEOPOROSIS
     Dosage: 60 MG/1 DAY

REACTIONS (5)
  - CONTUSION [None]
  - FALL [None]
  - HAND CRUSHING [None]
  - HOT FLUSH [None]
  - WRIST FRACTURE [None]
